FAERS Safety Report 20827683 (Version 2)
Quarter: 2022Q3

REPORT INFORMATION
  Report Type: Spontaneous
  Country: US (occurrence: US)
  Receive Date: 20220513
  Receipt Date: 20220725
  Transmission Date: 20221027
  Serious: Yes (Death, Other)
  Sender: FDA-Public Use
  Company Number: US-AMGEN-USASP2022081424

PATIENT

DRUGS (5)
  1. CARFILZOMIB [Suspect]
     Active Substance: CARFILZOMIB
     Indication: Plasma cell myeloma
     Dosage: 20 MILLIGRAM/SQ. METER ON DAYS 1, 2, 8, 9, 15, AND 16
     Route: 042
  2. CARFILZOMIB [Suspect]
     Active Substance: CARFILZOMIB
     Indication: Off label use
     Dosage: 36 MILLIGRAM/SQ. METER
     Route: 042
  3. FILGRASTIM [Suspect]
     Active Substance: FILGRASTIM
     Indication: Autologous haematopoietic stem cell transplant
     Dosage: UNK
     Route: 065
  4. LENALIDOMIDE [Concomitant]
     Active Substance: LENALIDOMIDE
     Indication: Plasma cell myeloma
     Dosage: 25 MILLIGRAM ON DAYS 1-21
  5. DEXAMETHASONE [Concomitant]
     Active Substance: DEXAMETHASONE
     Indication: Plasma cell myeloma
     Dosage: 20-40 MG EITHER WEEKLY OR ON DAYS 1-4, 9-12, AND 17-20

REACTIONS (11)
  - Death [Fatal]
  - Neuropathy peripheral [Unknown]
  - Pulmonary embolism [Unknown]
  - Deep vein thrombosis [Unknown]
  - Cardiac failure [Unknown]
  - Platelet count increased [Unknown]
  - Bacterial infection [Unknown]
  - Neutrophil count increased [Unknown]
  - Off label use [Unknown]
  - Superficial vein thrombosis [Unknown]
  - Therapy partial responder [Unknown]
